FAERS Safety Report 11553417 (Version 1)
Quarter: 2015Q3

REPORT INFORMATION
  Report Type: Spontaneous
  Country: VE (occurrence: VE)
  Receive Date: 20150925
  Receipt Date: 20150925
  Transmission Date: 20151125
  Serious: Yes (Hospitalization)
  Sender: FDA-Public Use
  Company Number: PHHY2015VE115314

PATIENT
  Sex: Female

DRUGS (2)
  1. STALEVO [Suspect]
     Active Substance: CARBIDOPA\ENTACAPONE\LEVODOPA
     Indication: PARKINSON^S DISEASE
     Dosage: 100/12.5/200 MG
     Route: 065
  2. STALEVO [Suspect]
     Active Substance: CARBIDOPA\ENTACAPONE\LEVODOPA
     Dosage: 100/12.5/200 MG
     Route: 065

REACTIONS (6)
  - Arthropathy [Recovering/Resolving]
  - Feeding disorder [Recovering/Resolving]
  - Dysphagia [Recovering/Resolving]
  - Movement disorder [Recovering/Resolving]
  - Mastication disorder [Recovering/Resolving]
  - Muscle rigidity [Recovering/Resolving]
